FAERS Safety Report 11754873 (Version 2)
Quarter: 2015Q4

REPORT INFORMATION
  Report Type: Report from Study
  Country: CA (occurrence: CA)
  Receive Date: 20151119
  Receipt Date: 20151119
  Transmission Date: 20160304
  Serious: Yes (Other)
  Sender: FDA-Public Use
  Company Number: CA-BAYER-2015-456274

PATIENT
  Age: 72 Year
  Sex: Male

DRUGS (1)
  1. STIVARGA [Suspect]
     Active Substance: REGORAFENIB
     Indication: COLORECTAL CANCER METASTATIC
     Dosage: UNK UNK, QD
     Route: 048
     Dates: start: 20151007, end: 2015

REACTIONS (6)
  - Palmar-plantar erythrodysaesthesia syndrome [None]
  - Adverse drug reaction [Not Recovered/Not Resolved]
  - Dry skin [None]
  - Pain [Unknown]
  - Blister [None]
  - Pain in extremity [None]

NARRATIVE: CASE EVENT DATE: 2015
